FAERS Safety Report 12958099 (Version 7)
Quarter: 2017Q2

REPORT INFORMATION
  Report Type: Report from Study
  Country: AT (occurrence: AT)
  Receive Date: 20161120
  Receipt Date: 20170620
  Transmission Date: 20170830
  Serious: Yes (Hospitalization)
  Sender: FDA-Public Use
  Company Number: AT-ROCHE-1849312

PATIENT
  Age: 50 Year
  Sex: Female
  Weight: 70 kg

DRUGS (16)
  1. BEVACIZUMAB [Suspect]
     Active Substance: BEVACIZUMAB
     Indication: NON-SMALL CELL LUNG CANCER STAGE IV
     Dosage: MOST RECENT DOSE 400 MG PRIOR TO AE ONSET: 25/OCT/2016
     Route: 042
     Dates: start: 20160419
  2. PANTOPRAZOL [Concomitant]
     Active Substance: PANTOPRAZOLE SODIUM
     Indication: PROPHYLAXIS
     Route: 065
     Dates: start: 20160412
  3. IRENAT [Concomitant]
     Active Substance: SODIUM PERCHLORATE MONOHYDRATE
     Indication: SCAN WITH CONTRAST
  4. SERTRALINE [Concomitant]
     Active Substance: SERTRALINE HYDROCHLORIDE
     Indication: DEPRESSION
     Route: 065
     Dates: start: 20160329
  5. CARBOPLATIN. [Suspect]
     Active Substance: CARBOPLATIN
     Indication: NON-SMALL CELL LUNG CANCER STAGE IV
     Dosage: DOSE: TARGET AREA UNDER CONCENTRATION TIME CURVE AUC 6 MG/ML/MIN?MOST RECENT DOSE 703.8 MG OF CARBOP
     Route: 042
     Dates: start: 20160419
  6. CLAVAMOX [Concomitant]
     Active Substance: AMOXICILLIN\CLAVULANATE POTASSIUM
     Indication: PAIN IN EXTREMITY
     Route: 065
     Dates: start: 20161227
  7. NOVALGIN (AUSTRIA) [Concomitant]
     Indication: PROPHYLAXIS
     Route: 065
     Dates: start: 20160412, end: 20161130
  8. ATEZOLIZUMAB [Suspect]
     Active Substance: ATEZOLIZUMAB
     Indication: NON-SMALL CELL LUNG CANCER STAGE IV
     Dosage: MOST RECENT DOSE PRIOR TO AE ONSET: 25/OCT/2016
     Route: 042
     Dates: start: 20160419
  9. REVAMIL [Concomitant]
     Indication: CATHETER SITE INFECTION
     Route: 065
     Dates: start: 20160825, end: 20161004
  10. IRENAT [Concomitant]
     Active Substance: SODIUM PERCHLORATE MONOHYDRATE
     Indication: HYPOTHYROIDISM
     Dosage: DROPS
     Route: 065
     Dates: start: 20161115, end: 20161121
  11. NEURONTIN (AUSTRIA) [Concomitant]
     Indication: PERIPHERAL SENSORY NEUROPATHY
     Route: 065
     Dates: start: 20161004, end: 20161130
  12. TAZONAM [Concomitant]
     Active Substance: TAZOBACTAM
     Indication: PNEUMONIA
     Dosage: 4.0G/0.5G
     Route: 065
     Dates: start: 20170104
  13. DICLOBENE [Concomitant]
     Active Substance: DICLOFENAC SODIUM
     Indication: PAIN IN EXTREMITY
     Route: 065
     Dates: start: 20161215, end: 20161223
  14. PACLITAXEL. [Suspect]
     Active Substance: PACLITAXEL
     Indication: NON-SMALL CELL LUNG CANCER STAGE IV
     Dosage: MOST RECENT DOSE OF 338 MG PACLITAXEL WAS ADMINISTERED ON 21/JUN/2016 PRIOR TO AE ONSET
     Route: 042
     Dates: start: 20160419
  15. SERACTIL [Concomitant]
     Active Substance: DEXIBUPROFEN
     Indication: PAIN IN EXTREMITY
     Route: 065
     Dates: start: 20161206, end: 20161223
  16. HYDAL [Concomitant]
     Active Substance: HYDROMORPHONE HYDROCHLORIDE
     Indication: PAIN IN EXTREMITY
     Route: 065
     Dates: start: 20161223

REACTIONS (1)
  - Compartment syndrome [Not Recovered/Not Resolved]

NARRATIVE: CASE EVENT DATE: 20161028
